FAERS Safety Report 4270621-8 (Version None)
Quarter: 2004Q1

REPORT INFORMATION
  Report Type: 
  Country: None (occurrence: None)
  Receive Date: 20040113
  Receipt Date: 20040102
  Transmission Date: 20041129
  Serious: Yes (Death, Life-Threatening, Hospitalization)
  Sender: FDA-Public Use
  Company Number: A-CH2003-04034

PATIENT
  Age: 76 Year
  Sex: Male

DRUGS (11)
  1. TRACLEER [Suspect]
     Indication: PULMONARY HYPERTENSION
     Dosage: 62.5 MG, BID, ORAL; 125 MG, BID, ORAL; 62.5 MG, BID, ORAL
     Route: 048
     Dates: start: 20031008, end: 20031103
  2. TRACLEER [Suspect]
     Indication: PULMONARY HYPERTENSION
     Dosage: 62.5 MG, BID, ORAL; 125 MG, BID, ORAL; 62.5 MG, BID, ORAL
     Route: 048
     Dates: start: 20031104, end: 20031125
  3. TRACLEER [Suspect]
     Indication: PULMONARY HYPERTENSION
     Dosage: 62.5 MG, BID, ORAL; 125 MG, BID, ORAL; 62.5 MG, BID, ORAL
     Route: 048
     Dates: start: 20031126, end: 20031215
  4. PREDNISOLONE [Concomitant]
  5. SILDENAFIL (SILDENAFIL) [Concomitant]
  6. IMIPENEM (IMIPENEM) [Concomitant]
  7. FUROSEMIDE [Concomitant]
  8. FLUTICASONE PROPIONATE [Concomitant]
  9. SALMETEROL (SALMETEROL) [Concomitant]
  10. MARCUMAR [Concomitant]
  11. IPRATROPIUM BROMIDE [Concomitant]

REACTIONS (2)
  - PNEUMONIA [None]
  - RIGHT VENTRICULAR FAILURE [None]
